FAERS Safety Report 8525196 (Version 4)
Quarter: 2012Q4

REPORT INFORMATION
  Report Type: 
  Country: GB (occurrence: GB)
  Receive Date: 20120423
  Receipt Date: 20121205
  Transmission Date: 20130627
  Serious: Yes (Other)
  Sender: FDA-Public Use
  Company Number: PHFR2012GB001452

PATIENT
  Age: 37 Year
  Sex: Male

DRUGS (9)
  1. CLOZARIL [Suspect]
     Indication: SCHIZOPHRENIA
     Dosage: 600 mg
     Route: 048
     Dates: start: 20010701
  2. CLOZARIL [Suspect]
     Dosage: 200 mg, Daily
     Route: 048
  3. CLOZARIL [Suspect]
     Dosage: 250 mg, UNK
     Route: 048
  4. CITALOPRAM [Concomitant]
     Indication: DEPRESSION
     Dosage: 40 mg, UNK
     Route: 048
  5. VALPROATE SODIUM [Concomitant]
     Indication: PANIC ATTACK
     Dosage: 500 mg, UNK
     Route: 048
  6. HYOSCINE [Concomitant]
     Dosage: UNK UKN, PRN
     Route: 048
  7. CLONAZEPAM [Concomitant]
     Indication: ANXIETY
     Dosage: 500 mg, UNK
     Route: 048
  8. LOPERAMIDE [Concomitant]
     Indication: DIARRHOEA
     Dosage: 2 mg, Daily
  9. CO-CODAMOL [Concomitant]
     Indication: PAIN
     Dosage: 1-2 tab
     Route: 048

REACTIONS (2)
  - Colon cancer [Unknown]
  - Differential white blood cell count abnormal [Not Recovered/Not Resolved]
